FAERS Safety Report 5169855-X (Version None)
Quarter: 2006Q4

REPORT INFORMATION
  Report Type: 
  Country: None (occurrence: None)
  Receive Date: 20061212
  Receipt Date: 20061021
  Transmission Date: 20070319
  Serious: No
  Sender: FDA-Public Use
  Company Number: US-AMGEN-US197673

PATIENT

DRUGS (2)
  1. SENSIPAR [Suspect]
     Indication: HYPERPARATHYROIDISM SECONDARY
  2. EPOGEN [Concomitant]
     Indication: DIALYSIS

REACTIONS (2)
  - DYSPNOEA [None]
  - HYPOAESTHESIA [None]
